FAERS Safety Report 15902380 (Version 2)
Quarter: 2019Q1

REPORT INFORMATION
  Report Type: Report from Study
  Country: ES (occurrence: ES)
  Receive Date: 20190201
  Receipt Date: 20190225
  Transmission Date: 20190417
  Serious: Yes (Death, Other)
  Sender: FDA-Public Use
  Company Number: ES-TEVA-2019-ES-1006420

PATIENT
  Age: 75 Year
  Sex: Male

DRUGS (3)
  1. ROTIGOTINE [Suspect]
     Active Substance: ROTIGOTINE
     Indication: PARKINSON^S DISEASE
     Dosage: 8 MILLIGRAM DAILY;
     Dates: start: 201807, end: 201810
  2. PRAMIPEXOLE DIHYDROCHLORIDE. [Suspect]
     Active Substance: PRAMIPEXOLE DIHYDROCHLORIDE
     Indication: PARKINSON^S DISEASE
     Route: 065
  3. SINEMET [Suspect]
     Active Substance: CARBIDOPA\LEVODOPA
     Indication: PARKINSON^S DISEASE
     Dosage: UNK
     Route: 048

REACTIONS (3)
  - Parkinson^s disease [Fatal]
  - Urinary tract infection [Fatal]
  - Death [Fatal]

NARRATIVE: CASE EVENT DATE: 2018
